FAERS Safety Report 11701399 (Version 3)
Quarter: 2016Q1

REPORT INFORMATION
  Report Type: Report from Study
  Country: US (occurrence: US)
  Receive Date: 20151105
  Receipt Date: 20160128
  Transmission Date: 20160525
  Serious: No
  Sender: FDA-Public Use
  Company Number: PHEH2015US022288

PATIENT
  Age: 39 Year
  Sex: Female

DRUGS (1)
  1. COSENTYX [Suspect]
     Active Substance: SECUKINUMAB
     Indication: PSORIASIS
     Dosage: 300 MG, QMO
     Route: 058
     Dates: start: 20150901

REACTIONS (4)
  - Device malfunction [Unknown]
  - Drug ineffective [Unknown]
  - Incorrect dose administered [Unknown]
  - Accidental exposure to product [Unknown]

NARRATIVE: CASE EVENT DATE: 201509
